FAERS Safety Report 6228398-2 (Version None)
Quarter: 2009Q2

REPORT INFORMATION
  Report Type: 
  Country: None (occurrence: None)
  Receive Date: 20090610
  Receipt Date: 20090610
  Transmission Date: 20091009
  Serious: Yes (Hospitalization)
  Sender: FDA-Public Use
  Company Number: None

PATIENT
  Sex: Female
  Weight: 82.73 kg

DRUGS (2)
  1. CISPLATIN [Suspect]
     Dosage: 58 MG
  2. ERBITUX [Suspect]
     Dosage: 480 MG

REACTIONS (15)
  - ALANINE AMINOTRANSFERASE INCREASED [None]
  - ASPARTATE AMINOTRANSFERASE INCREASED [None]
  - BLOOD ALKALINE PHOSPHATASE INCREASED [None]
  - BLOOD MAGNESIUM DECREASED [None]
  - BLOOD POTASSIUM DECREASED [None]
  - DEAFNESS [None]
  - DRUG INEFFECTIVE [None]
  - HAEMATOCRIT DECREASED [None]
  - HEADACHE [None]
  - IDIOPATHIC THROMBOCYTOPENIC PURPURA [None]
  - NASAL CONGESTION [None]
  - NECK PAIN [None]
  - NEUTROPHIL COUNT DECREASED [None]
  - REFRACTORINESS TO PLATELET TRANSFUSION [None]
  - WHITE BLOOD CELL COUNT DECREASED [None]
